FAERS Safety Report 7132284-3 (Version None)
Quarter: 2010Q4

REPORT INFORMATION
  Report Type: 
  Country: None (occurrence: None)
  Receive Date: 20101202
  Receipt Date: 20101119
  Transmission Date: 20110411
  Serious: Yes (Other)
  Sender: FDA-Public Use
  Company Number: PHHY2010US79087

PATIENT
  Sex: Female

DRUGS (1)
  1. EXJADE [Suspect]
     Indication: LYMPHOCYTE COUNT ABNORMAL
     Dosage: 1000 MG DAILY
     Route: 048
     Dates: start: 20100201

REACTIONS (3)
  - BLOOD COUNT ABNORMAL [None]
  - FATIGUE [None]
  - TRANSFUSION [None]
